FAERS Safety Report 5032692-0 (Version None)
Quarter: 2006Q2

REPORT INFORMATION
  Report Type: 
  Country: None (occurrence: None)
  Receive Date: 20060620
  Receipt Date: 20060620
  Transmission Date: 20061013
  Serious: Yes (Hospitalization)
  Sender: FDA-Public Use
  Company Number: None

PATIENT
  Age: 70 Year
  Sex: Female
  Weight: 57.6068 kg

DRUGS (9)
  1. MEGACE [Suspect]
     Indication: WEIGHT DECREASED
     Dosage: 800MG QD PO
     Route: 048
     Dates: start: 20060424, end: 20060520
  2. ATENOLOL [Concomitant]
  3. COMPAZINE [Concomitant]
  4. NORVASC [Concomitant]
  5. OXY-IR [Concomitant]
  6. ALTACE [Concomitant]
  7. GEMZAR [Concomitant]
  8. KYTRIL [Concomitant]
  9. ARANESP [Concomitant]

REACTIONS (2)
  - NAUSEA [None]
  - VOMITING [None]
